FAERS Safety Report 7898658-8 (Version None)
Quarter: 2011Q4

REPORT INFORMATION
  Report Type: 
  Country: None (occurrence: None)
  Receive Date: 20111107
  Receipt Date: 20111103
  Transmission Date: 20120403
  Serious: Yes (Death, Other)
  Sender: FDA-Public Use
  Company Number: US-AMGEN-USASP2011038104

PATIENT
  Age: 66 Year
  Sex: Female

DRUGS (3)
  1. RITUXIMAB [Concomitant]
  2. CORTICOSTEROIDS [Concomitant]
  3. NPLATE [Suspect]
     Indication: IDIOPATHIC THROMBOCYTOPENIC PURPURA
     Dates: start: 20110214, end: 20110712

REACTIONS (5)
  - THROMBOCYTOPENIA [None]
  - CHRONIC LYMPHOCYTIC LEUKAEMIA [None]
  - CARDIO-RESPIRATORY ARREST [None]
  - PNEUMONIA [None]
  - CRYPTOCOCCAL CUTANEOUS INFECTION [None]
